FAERS Safety Report 25905352 (Version 2)
Quarter: 2025Q4

REPORT INFORMATION
  Report Type: Spontaneous
  Country: EU (occurrence: EU)
  Receive Date: 20251010
  Receipt Date: 20251222
  Transmission Date: 20260118
  Serious: Yes (Hospitalization, Disabling, Other)
  Sender: AMGEN
  Company Number: EU-002147023-NVSC2025HR152803

PATIENT
  Age: 28 Week
  Sex: Female

DRUGS (1)
  1. AIMOVIG [Suspect]
     Active Substance: ERENUMAB-AOOE
     Indication: Foetal exposure during pregnancy
     Dosage: UNK (MATERNAL EXPOSURE DURING PREGNANCY: 140 MG, 28D)
     Route: 064

REACTIONS (5)
  - Low birth weight baby [Unknown]
  - Haemorrhage intracranial [Recovering/Resolving]
  - Premature baby [Recovering/Resolving]
  - Motor dysfunction [Recovering/Resolving]
  - Foetal exposure during pregnancy [Unknown]

NARRATIVE: CASE EVENT DATE: 20240117
